FAERS Safety Report 19592552 (Version 1)
Quarter: 2021Q3

REPORT INFORMATION
  Report Type: Spontaneous
  Country: US (occurrence: US)
  Receive Date: 20210721
  Receipt Date: 20210721
  Transmission Date: 20211014
  Serious: Yes (Hospitalization)
  Sender: FDA-Public Use
  Company Number: None

PATIENT
  Age: 67 Year
  Sex: Male
  Weight: 94.8 kg

DRUGS (13)
  1. GABAPENTIN. [Concomitant]
     Active Substance: GABAPENTIN
  2. THERAGRAM M [Concomitant]
     Active Substance: VITAMINS
  3. VITAMIN B 1 [Concomitant]
  4. IBURPROFEN [Concomitant]
  5. METFORMIN [Concomitant]
     Active Substance: METFORMIN HYDROCHLORIDE
  6. OMEPRAZOLE. [Concomitant]
     Active Substance: OMEPRAZOLE
  7. OXYCODONE [Concomitant]
     Active Substance: OXYCODONE
  8. REMERON [Concomitant]
     Active Substance: MIRTAZAPINE
  9. TOPAMAX [Concomitant]
     Active Substance: TOPIRAMATE
  10. CAPECITABINE  500 MG TABLET [Suspect]
     Active Substance: CAPECITABINE
     Indication: HEAD AND NECK CANCER
     Route: 048
     Dates: start: 20210605
  11. ZOFRAN [Concomitant]
     Active Substance: ONDANSETRON HYDROCHLORIDE
  12. LEVOTHYROXINE. [Concomitant]
     Active Substance: LEVOTHYROXINE
  13. JMELATONIN [Concomitant]

REACTIONS (1)
  - Gait disturbance [None]
